FAERS Safety Report 4503221-2 (Version None)
Quarter: 2004Q4

REPORT INFORMATION
  Report Type: 
  Country: None (occurrence: None)
  Receive Date: 20041112
  Receipt Date: 20041026
  Transmission Date: 20050328
  Serious: Yes (Hospitalization)
  Sender: FDA-Public Use
  Company Number: DSA_70505_2004

PATIENT
  Age: 44 Year
  Sex: Female

DRUGS (3)
  1. AZATHIOPRINE [Suspect]
     Indication: IMMUNOSUPPRESSION
     Dosage: 50 MG QDAY
  2. METHYLPREDNISOLONE [Suspect]
     Indication: IMMUNOSUPPRESSION
     Dosage: 6 MG QDAY
  3. MIZORIBINE [Suspect]
     Indication: IMMUNOSUPPRESSION
     Dosage: 100 MG QDAY

REACTIONS (11)
  - ASTHENIA [None]
  - BREAST CANCER [None]
  - CHROMOSOME ABNORMALITY [None]
  - COLON CANCER [None]
  - DIFFICULTY IN WALKING [None]
  - HAEMANGIOMA OF LIVER [None]
  - HAEMODIALYSIS [None]
  - KIDNEY TRANSPLANT REJECTION [None]
  - PNEUMONITIS CRYPTOCOCCAL [None]
  - RENAL IMPAIRMENT [None]
  - SPINAL MENINGIOMA BENIGN [None]
